FAERS Safety Report 13260183 (Version 1)
Quarter: 2017Q1

REPORT INFORMATION
  Report Type: Spontaneous
  Country: US (occurrence: US)
  Receive Date: 20170222
  Receipt Date: 20170222
  Transmission Date: 20170428
  Serious: No
  Sender: FDA-Public Use
  Company Number: US-TEVA-728900USA

PATIENT
  Age: 30 Year
  Sex: Female

DRUGS (1)
  1. AMPHETAMINE W/DEXTROAMPHETAMINE [Suspect]
     Active Substance: AMPHETAMINE SULFATE\DEXTROAMPHETAMINE

REACTIONS (4)
  - Disturbance in attention [Unknown]
  - Restlessness [Unknown]
  - Drug ineffective [Unknown]
  - Fatigue [Unknown]
